FAERS Safety Report 14136504 (Version 2)
Quarter: 2018Q1

REPORT INFORMATION
  Report Type: Report from Study
  Country: US (occurrence: US)
  Receive Date: 20171027
  Receipt Date: 20180123
  Transmission Date: 20180508
  Serious: No
  Sender: FDA-Public Use
  Company Number: US-AMGEN-USASL2017156800

PATIENT
  Age: 72 Year
  Sex: Female

DRUGS (1)
  1. REPATHA [Suspect]
     Active Substance: EVOLOCUMAB
     Indication: BLOOD CHOLESTEROL INCREASED
     Dosage: 140 MG, Q2WK
     Route: 065
     Dates: start: 201708

REACTIONS (11)
  - Injection site pain [Unknown]
  - Injection site bruising [Unknown]
  - Back pain [Recovered/Resolved]
  - Eye swelling [Unknown]
  - Skin tightness [Recovered/Resolved]
  - Feeling abnormal [Unknown]
  - Ocular hyperaemia [Unknown]
  - Lip swelling [Recovered/Resolved]
  - Erythema [Not Recovered/Not Resolved]
  - Skin exfoliation [Recovered/Resolved]
  - Arthralgia [Unknown]

NARRATIVE: CASE EVENT DATE: 2017
